FAERS Safety Report 25435266 (Version 1)
Quarter: 2025Q2

REPORT INFORMATION
  Report Type: Spontaneous
  Country: LV (occurrence: LV)
  Receive Date: 20250613
  Receipt Date: 20250613
  Transmission Date: 20250717
  Serious: Yes (Hospitalization)
  Sender: STRIDES
  Company Number: LV-STRIDES ARCOLAB LIMITED-2025SP007137

PATIENT
  Age: 91 Year
  Sex: Female

DRUGS (2)
  1. OLANZAPINE [Suspect]
     Active Substance: OLANZAPINE
     Indication: Hallucination
     Route: 048
  2. HALOPERIDOL [Suspect]
     Active Substance: HALOPERIDOL
     Indication: Hallucination
     Route: 048

REACTIONS (7)
  - Social avoidant behaviour [Recovering/Resolving]
  - Muscle rigidity [Recovering/Resolving]
  - Multiple drug hypersensitivity [None]
  - Condition aggravated [None]
  - Extrapyramidal disorder [Recovering/Resolving]
  - Somnolence [Recovering/Resolving]
  - Off label use [Unknown]
